FAERS Safety Report 6515663-4 (Version None)
Quarter: 2009Q4

REPORT INFORMATION
  Report Type: 
  Country: None (occurrence: None)
  Receive Date: 20091223
  Receipt Date: 20091221
  Transmission Date: 20100525
  Serious: Yes (Hospitalization)
  Sender: FDA-Public Use
  Company Number: DE-SANOFI-AVENTIS-200911656DE

PATIENT
  Age: 67 Year
  Sex: Male
  Weight: 107 kg

DRUGS (4)
  1. INSULIN GLARGINE [Suspect]
     Dosage: DAILY DOSE: 30 IU ONCE AT 22:00
     Route: 058
     Dates: start: 20070328, end: 20090602
  2. BERLINSULIN H [Concomitant]
     Dosage: 30-0-30 IU DAILY
     Route: 065
  3. BERLINSULIN H BASAL [Concomitant]
     Dosage: DAILY DOSE: 40 IU ONCE AT 22:00
     Route: 065
  4. METFORMIN HCL [Concomitant]
     Dosage: DAILY DOSE: 1-0-0-1
     Route: 048

REACTIONS (1)
  - BRONCHIAL CARCINOMA [None]
